FAERS Safety Report 13577496 (Version 1)
Quarter: 2017Q2

REPORT INFORMATION
  Report Type: Spontaneous
  Country: US (occurrence: US)
  Receive Date: 20170524
  Receipt Date: 20170524
  Transmission Date: 20170830
  Serious: Yes (Death, Life-Threatening, Hospitalization, Disabling)
  Sender: FDA-Public Use
  Company Number: US-JNJFOC-20170520703

PATIENT

DRUGS (2)
  1. RISPERIDONE. [Suspect]
     Active Substance: RISPERIDONE
     Indication: DEPRESSION
     Route: 065
  2. RISPERIDONE. [Suspect]
     Active Substance: RISPERIDONE
     Indication: BIPOLAR DISORDER
     Route: 065

REACTIONS (14)
  - Cardiac arrest [Unknown]
  - Seizure [Unknown]
  - Acidosis [Unknown]
  - Arrhythmia [Unknown]
  - Coma [Unknown]
  - Electrocardiogram change [Unknown]
  - Conduction disorder [Unknown]
  - Off label use [Unknown]
  - Death [Fatal]
  - Respiratory depression [Unknown]
  - Renal failure [Unknown]
  - Respiratory arrest [Unknown]
  - Product use in unapproved indication [Unknown]
  - Bradycardia [Unknown]
